FAERS Safety Report 6184401-X (Version None)
Quarter: 2009Q2

REPORT INFORMATION
  Report Type: 
  Country: None (occurrence: None)
  Receive Date: 20090508
  Receipt Date: 20090427
  Transmission Date: 20091009
  Serious: Yes (Hospitalization)
  Sender: FDA-Public Use
  Company Number: B0569327A

PATIENT
  Age: 24 Year
  Sex: Female

DRUGS (4)
  1. LAMOTRIGINE [Suspect]
     Dosage: 4200MG CUMULATIVE DOSE
     Route: 048
     Dates: start: 20070301
  2. ALCOHOL [Suspect]
     Dosage: 1500ML PER DAY
     Route: 048
  3. MIRTAZAPINE [Concomitant]
     Dosage: 30MG PER DAY
     Route: 065
  4. RISPERIDONE [Concomitant]
     Dosage: 2MG TWICE PER DAY
     Route: 065

REACTIONS (13)
  - ABDOMINAL PAIN UPPER [None]
  - ATAXIA [None]
  - BLOOD AMYLASE INCREASED [None]
  - DEHYDRATION [None]
  - DYSARTHRIA [None]
  - INTENTIONAL OVERDOSE [None]
  - LETHARGY [None]
  - METABOLIC ACIDOSIS [None]
  - NYSTAGMUS [None]
  - PANCREATITIS ACUTE [None]
  - TACHYCARDIA [None]
  - ULTRASOUND ABDOMEN ABNORMAL [None]
  - VOMITING [None]
